FAERS Safety Report 13075862 (Version 2)
Quarter: 2017Q1

REPORT INFORMATION
  Report Type: Report from Study
  Country: US (occurrence: US)
  Receive Date: 20161230
  Receipt Date: 20170217
  Transmission Date: 20170428
  Serious: No
  Sender: FDA-Public Use
  Company Number: US-ALEXION PHARMACEUTICALS INC.-A201610283

PATIENT
  Sex: Male

DRUGS (1)
  1. SOLIRIS [Suspect]
     Active Substance: ECULIZUMAB
     Indication: PAROXYSMAL NOCTURNAL HAEMOGLOBINURIA
     Dosage: 900 MG, Q2W
     Route: 042

REACTIONS (5)
  - Platelet count abnormal [Recovered/Resolved]
  - White blood cell count abnormal [Recovered/Resolved]
  - Serum ferritin abnormal [Recovered/Resolved]
  - Blood lactate dehydrogenase abnormal [Recovered/Resolved]
  - Haemoglobin abnormal [Recovered/Resolved]
